FAERS Safety Report 5063049-4 (Version None)
Quarter: 2006Q3

REPORT INFORMATION
  Report Type: 
  Country: None (occurrence: None)
  Receive Date: 20060727
  Receipt Date: 20060718
  Transmission Date: 20061208
  Serious: Yes (Other)
  Sender: FDA-Public Use
  Company Number: GBWYE230418JUL06

PATIENT
  Sex: Male

DRUGS (2)
  1. ENBREL [Suspect]
     Indication: ANKYLOSING SPONDYLITIS
     Route: 058
     Dates: start: 20060106, end: 20060401
  2. ACETAMINOPHEN W/ CODEINE [Concomitant]
     Indication: ARTHRALGIA
     Dosage: UNKNOWN
     Route: 048
     Dates: start: 20010403

REACTIONS (5)
  - ABDOMINAL DISTENSION [None]
  - CHEST DISCOMFORT [None]
  - DYSPEPSIA [None]
  - GASTROOESOPHAGEAL REFLUX DISEASE [None]
  - HYPERSENSITIVITY [None]
